FAERS Safety Report 14008444 (Version 1)
Quarter: 2017Q3

REPORT INFORMATION
  Report Type: Spontaneous
  Country: US (occurrence: US)
  Receive Date: 20170925
  Receipt Date: 20170925
  Transmission Date: 20171128
  Serious: Yes (Life-Threatening, Hospitalization)
  Sender: FDA-Public Use
  Company Number: US-PFIZER INC-2017411409

PATIENT
  Age: 53 Year
  Sex: Male
  Weight: 79.38 kg

DRUGS (11)
  1. HYDROXYZINE [Concomitant]
     Active Substance: HYDROXYZINE HYDROCHLORIDE
     Indication: ANXIETY
     Dosage: 50MG CAPSULE TWICE A DAY/ALSO TAKES 100MG AT BEDTIME
     Route: 048
  2. TIKOSYN [Suspect]
     Active Substance: DOFETILIDE
     Indication: ATRIAL FIBRILLATION
     Dosage: 500MCG TWICE A DAY, CAPSULE BY MOUTH
     Route: 048
  3. ESTRADIOL. [Concomitant]
     Active Substance: ESTRADIOL
     Indication: ANTIANDROGEN THERAPY
     Dosage: 1MG TABLET BY MOUTH DAILY
     Route: 048
  4. OMEPRAZOLE. [Concomitant]
     Active Substance: OMEPRAZOLE
     Indication: GASTROOESOPHAGEAL REFLUX DISEASE
     Dosage: 40MG TABLET ONCE A DAY BY MOUTH
     Route: 048
  5. TRAZODONE [Concomitant]
     Active Substance: TRAZODONE HYDROCHLORIDE
     Indication: SLEEP DISORDER
     Dosage: 100MG TABLET ONCE A DAY AT BEDTIME
  6. ASPIRIN. [Concomitant]
     Active Substance: ASPIRIN
     Indication: PROPHYLAXIS
     Dosage: 81MG TABLET ONCE A DAY BY MOUTH
     Route: 048
  7. BENZTROPINE [Concomitant]
     Active Substance: BENZTROPINE
     Indication: PROPHYLAXIS
     Dosage: 1MG TABLET, ONCE A DAY BY MOUTH
     Route: 048
  8. REXULTI [Concomitant]
     Active Substance: BREXPIPRAZOLE
     Indication: DEPRESSION
     Dosage: 2MG TABLET ONCE A DAY
  9. BUSPIRONE [Concomitant]
     Active Substance: BUSPIRONE HYDROCHLORIDE
     Indication: ANXIETY
     Dosage: 10MG, ONE TABLET BY MOUTH TWICE DAILY
     Route: 048
  10. OXCARBAZEPINE. [Concomitant]
     Active Substance: OXCARBAZEPINE
     Indication: SEIZURE
     Dosage: 150MG TABLET TWICE A DAY BY MOUTH
     Route: 048
  11. PROPRANOLOL [Concomitant]
     Active Substance: PROPRANOLOL HYDROCHLORIDE
     Indication: CHEST PAIN
     Dosage: 10MG TABLET ONCE A DAY BY MOUTH
     Route: 048

REACTIONS (2)
  - Suicide attempt [Unknown]
  - Depression [Unknown]
